FAERS Safety Report 20781432 (Version 2)
Quarter: 2022Q2

REPORT INFORMATION
  Report Type: Spontaneous
  Country: HR (occurrence: HR)
  Receive Date: 20220504
  Receipt Date: 20220511
  Transmission Date: 20220720
  Serious: Yes (Disabling, Other)
  Sender: FDA-Public Use
  Company Number: HR-SA-SAC20220429001047

PATIENT
  Age: 8 Year
  Sex: Male
  Weight: 40.9 kg

DRUGS (1)
  1. IMIGLUCERASE [Suspect]
     Active Substance: IMIGLUCERASE
     Indication: Gaucher^s disease type II
     Dosage: UNK
     Route: 041
     Dates: start: 201309

REACTIONS (4)
  - Splenomegaly [Unknown]
  - Intellectual disability [Unknown]
  - Disturbance in attention [Unknown]
  - Hypokinesia [Unknown]

NARRATIVE: CASE EVENT DATE: 20210601
